FAERS Safety Report 19258758 (Version 2)
Quarter: 2021Q2

REPORT INFORMATION
  Report Type: Report from Study
  Country: US (occurrence: US)
  Receive Date: 20210514
  Receipt Date: 20210520
  Transmission Date: 20210717
  Serious: Yes (Hospitalization)
  Sender: FDA-Public Use
  Company Number: US-EISAI MEDICAL RESEARCH-EC-2021-091635

PATIENT
  Age: 79 Year
  Sex: Female

DRUGS (3)
  1. LENVIMA [Suspect]
     Active Substance: LENVATINIB
     Indication: UTERINE CANCER
     Route: 048
     Dates: start: 20210407, end: 20210423
  2. LENVIMA [Suspect]
     Active Substance: LENVATINIB
     Route: 048
     Dates: start: 20210424, end: 20210427
  3. KEYTRUDA [Suspect]
     Active Substance: PEMBROLIZUMAB
     Indication: PRODUCT USED FOR UNKNOWN INDICATION
     Dosage: UNKNOWN DOSE AND FREQUENCY
     Route: 065

REACTIONS (12)
  - Fatigue [Unknown]
  - Thyroid hormones increased [Unknown]
  - Hypertension [Not Recovered/Not Resolved]
  - Muscular weakness [Recovering/Resolving]
  - Headache [Unknown]
  - Speech disorder [Unknown]
  - Insomnia [Unknown]
  - Thyroid hormones decreased [Unknown]
  - Memory impairment [Unknown]
  - Troponin increased [Not Recovered/Not Resolved]
  - Oral pain [Unknown]
  - Immune-mediated myositis [Recovering/Resolving]

NARRATIVE: CASE EVENT DATE: 2021
